FAERS Safety Report 5053248-X (Version None)
Quarter: 2006Q3

REPORT INFORMATION
  Report Type: 
  Country: None (occurrence: None)
  Receive Date: 20060712
  Receipt Date: 20060622
  Transmission Date: 20061208
  Serious: Yes (Death, Hospitalization, Other)
  Sender: FDA-Public Use
  Company Number: USA050598518

PATIENT
  Age: 91 Year
  Sex: Female

DRUGS (8)
  1. FORTEO [Suspect]
     Indication: OSTEOPOROSIS
     Dates: start: 20050301
  2. DIOVAN [Concomitant]
  3. NORVASC [Concomitant]
  4. FOLIC ACID [Concomitant]
  5. ZOCOR [Concomitant]
  6. LASIX (FUROSEMIDE /00032601/) [Concomitant]
  7. FORTEO PEN, 250MCG/ML (3ML) (FORTEO PEN 250MCG/ML (3ML)) PEN, DISPOSAB [Concomitant]
  8. FORTEO [Concomitant]

REACTIONS (4)
  - AORTIC DISSECTION [None]
  - MEMORY IMPAIRMENT [None]
  - MYOCARDIAL INFARCTION [None]
  - PHARMACEUTICAL PRODUCT COMPLAINT [None]
